FAERS Safety Report 5216639-X (Version None)
Quarter: 2007Q1

REPORT INFORMATION
  Report Type: 
  Country: None (occurrence: None)
  Receive Date: 20061130
  Receipt Date: 20060419
  Transmission Date: 20070707
  Serious: Yes (Hospitalization)
  Sender: FDA-Public Use
  Company Number: US200604003020

PATIENT
  Age: 56 Year
  Sex: Male

DRUGS (1)
  1. ZYPREXA [Suspect]
     Dosage: 50 MG, DAILY (1/D), DENTAL
     Dates: start: 20050701, end: 20060401

REACTIONS (3)
  - BLOOD GLUCOSE INCREASED [None]
  - KETOACIDOSIS [None]
  - PRESCRIBED OVERDOSE [None]
